FAERS Safety Report 13552427 (Version 3)
Quarter: 2017Q3

REPORT INFORMATION
  Report Type: Report from Study
  Country: US (occurrence: US)
  Receive Date: 20170517
  Receipt Date: 20170821
  Transmission Date: 20171127
  Serious: Yes (Hospitalization)
  Sender: FDA-Public Use
  Company Number: US-ASTRAZENECA-2016SE51989

PATIENT
  Age: 968 Month
  Sex: Female
  Weight: 57.2 kg

DRUGS (12)
  1. DILTIAZEM. [Concomitant]
     Active Substance: DILTIAZEM
     Route: 048
  2. ZETIA [Concomitant]
     Active Substance: EZETIMIBE
     Indication: BLOOD CHOLESTEROL ABNORMAL
     Route: 048
  3. TUDORZA PRESSAIR [Suspect]
     Active Substance: ACLIDINIUM BROMIDE
     Indication: CHRONIC OBSTRUCTIVE PULMONARY DISEASE
     Dosage: 60 METERED DOSE INHALER, 400 MCG ONE PUFF TWO TIMES A DAY
     Route: 055
     Dates: start: 2010
  4. ISOSORBIDE. [Concomitant]
     Active Substance: ISOSORBIDE
     Indication: CARDIAC DISORDER
     Route: 048
  5. LEVOTHYROXINE. [Concomitant]
     Active Substance: LEVOTHYROXINE
     Indication: THYROID DISORDER
     Route: 047
  6. ALBUTEROL NEBULIZER [Concomitant]
     Active Substance: ALBUTEROL
     Dosage: FOUR TIMES A DAY
     Route: 055
  7. ADVAIR DISKUS [Concomitant]
     Active Substance: FLUTICASONE PROPIONATE\SALMETEROL XINAFOATE
     Dosage: 1 UNKNOWN UNIT TWO TIMES A DAY
     Route: 055
  8. ALENDRONATE [Concomitant]
     Active Substance: ALENDRONATE SODIUM
     Route: 048
  9. HYDRALAZINE [Concomitant]
     Active Substance: HYDRALAZINE HYDROCHLORIDE
     Indication: BLOOD PRESSURE ABNORMAL
     Route: 048
  10. MONTELUKAST [Concomitant]
     Active Substance: MONTELUKAST SODIUM
     Route: 048
  11. MULTIVITAMIN [Concomitant]
     Active Substance: VITAMINS
     Dosage: 1, DAILY
     Route: 048
  12. FUROSEMIDE. [Concomitant]
     Active Substance: FUROSEMIDE
     Indication: DIURETIC THERAPY
     Dosage: 20.0MG AS REQUIRED
     Route: 048

REACTIONS (8)
  - Cardiac failure congestive [Unknown]
  - Memory impairment [Unknown]
  - Lacrimation increased [Unknown]
  - Vision blurred [Unknown]
  - Visual impairment [Unknown]
  - Malaise [Unknown]
  - Weight decreased [Unknown]
  - Device failure [Unknown]

NARRATIVE: CASE EVENT DATE: 201603
